FAERS Safety Report 8336865-0 (Version None)
Quarter: 2012Q2

REPORT INFORMATION
  Report Type: 
  Country: None (occurrence: None)
  Receive Date: 20120504
  Receipt Date: 20110601
  Transmission Date: 20120825
  Serious: No
  Sender: FDA-Public Use
  Company Number: US-TEVA-2011002170

PATIENT
  Sex: Male
  Weight: 118.49 kg

DRUGS (7)
  1. HUMULIN INSULIN U-500 [Concomitant]
     Indication: DIABETES MELLITUS
     Dosage: 60 DOSAGE FORMS;
     Route: 058
     Dates: start: 20110401
  2. ASPIRIN [Concomitant]
     Dates: start: 20080101
  3. LISINOPRIL [Concomitant]
     Dates: start: 20080101
  4. OMEPRAZOLE [Concomitant]
     Dates: start: 20080101
  5. SIMVASTATIN [Concomitant]
     Dates: start: 20070101
  6. METFORMIN HCL [Concomitant]
     Dates: start: 20020101
  7. NUVIGIL [Suspect]
     Indication: SOMNOLENCE
     Dosage: 150 MILLIGRAM;
     Route: 048
     Dates: start: 20110503

REACTIONS (1)
  - BLOOD GLUCOSE INCREASED [None]
